FAERS Safety Report 23182730 (Version 9)
Quarter: 2025Q1

REPORT INFORMATION
  Report Type: Spontaneous
  Country: IN (occurrence: IN)
  Receive Date: 20231114
  Receipt Date: 20250324
  Transmission Date: 20250409
  Serious: Yes (Other)
  Sender: PFIZER
  Company Number: IN-PFIZER INC-PV202300072123

PATIENT
  Age: 63 Year
  Sex: Female

DRUGS (24)
  1. PALBOCICLIB [Suspect]
     Active Substance: PALBOCICLIB
     Route: 048
     Dates: start: 20220328
  2. PALBOCICLIB [Suspect]
     Active Substance: PALBOCICLIB
     Dosage: 125 MG, 1X/DAY
  3. CALCIUM\CHOLECALCIFEROL [Concomitant]
     Active Substance: CALCIUM\CHOLECALCIFEROL
     Dosage: UNK, WEEKLY
  4. CALCIUM ASCORBATE [Concomitant]
     Active Substance: CALCIUM ASCORBATE
     Dosage: UNK UNK, 1X/DAY X 2 MONTHS
  5. NEWCAL D3 [Concomitant]
     Dosage: 1 DF, 1X/DAY FOR 2 MONTHS
  6. FEZA [Concomitant]
     Dosage: 1 DF, 1X/DAY
  7. NEUROBION FORTE [CALCIUM PANTOTHENATE;CYANOCOBALAMIN;NICOTINAMIDE;PYRI [Concomitant]
     Dosage: UNK UNK, 1X/DAY X 2 MONTHS
  8. VITAMIN D3 [Concomitant]
     Active Substance: CHOLECALCIFEROL
     Dosage: UNK UNK, 1X/DAY X 2 MONTHS
  9. DAPAGLIFLOZIN [Concomitant]
     Active Substance: DAPAGLIFLOZIN
  10. EXEMESTANE [Concomitant]
     Active Substance: EXEMESTANE
     Dosage: 25 MG, 1X/DAY X 2 MONTHS
  11. GLIMEPIRIDE [Concomitant]
     Active Substance: GLIMEPIRIDE
     Dosage: 1 MG, 1X/DAY X 2 MONTHS
  12. HEME IRON POLYPEPTIDE [Concomitant]
     Dosage: OD X 2 MONTHS
  13. HYDROCHLOROTHIAZIDE [Concomitant]
     Active Substance: HYDROCHLOROTHIAZIDE
     Dosage: X 2 MONTHS
  14. LOSARTAN [Concomitant]
     Active Substance: LOSARTAN
     Dosage: 50 MG, OD
  15. MAGNESIUM [Concomitant]
     Active Substance: MAGNESIUM
     Dosage: UNK UNK, 1X/DAY X 2 MONTHS
  16. METFORMIN [Concomitant]
     Active Substance: METFORMIN HYDROCHLORIDE
     Indication: Diabetes mellitus
     Dosage: 500 MG, 1X/DAY
  17. METFORMIN HYDROCHLORIDE [Concomitant]
     Active Substance: METFORMIN HYDROCHLORIDE
     Dosage: 500 MG, OD X 2 MONTHS
  18. OMEPRAZOLE [Concomitant]
     Active Substance: OMEPRAZOLE
     Dosage: OD/SOS X 2 MONTHS; BBF
  19. ACETAMINOPHEN [Concomitant]
     Active Substance: ACETAMINOPHEN
  20. PIROXICAM [Concomitant]
     Active Substance: PIROXICAM
     Dosage: UNK UNK, 1X/DAY X 2 MONTHS
  21. SITAGLIPTIN [Concomitant]
     Active Substance: SITAGLIPTIN
     Dosage: 100 MG OD X 2 MONTHS
  22. TENELIGLIPTIN [Concomitant]
     Active Substance: TENELIGLIPTIN
     Indication: Diabetes mellitus
     Dosage: 20 MG, 1X/DAY
  23. PREGABALIN [Concomitant]
     Active Substance: PREGABALIN
     Dosage: 50 MG, 1X/DAY
  24. ZOLEBENZ [Concomitant]

REACTIONS (9)
  - Neuropathy peripheral [Unknown]
  - Cataract [Not Recovered/Not Resolved]
  - Osteoarthritis [Not Recovered/Not Resolved]
  - Hypertension [Unknown]
  - Dry eye [Unknown]
  - Anaemia [Unknown]
  - Osteoporosis [Unknown]
  - Arthralgia [Unknown]
  - Pruritus [Unknown]

NARRATIVE: CASE EVENT DATE: 20240125
